FAERS Safety Report 20597444 (Version 1)
Quarter: 2022Q1

REPORT INFORMATION
  Report Type: Spontaneous
  Country: US (occurrence: None)
  Receive Date: 20220315
  Receipt Date: 20220315
  Transmission Date: 20220424
  Serious: Yes (Hospitalization)
  Sender: FDA-Public Use
  Company Number: None

PATIENT
  Age: 62 Year
  Sex: Male

DRUGS (13)
  1. TESTOPEL [Suspect]
     Active Substance: TESTOSTERONE
     Indication: Testicular failure
     Dosage: OTHER FREQUENCY : EVERY 3 MONTHS;?
     Route: 058
     Dates: start: 20170712
  2. ABILIFY [Concomitant]
     Active Substance: ARIPIPRAZOLE
  3. ADVAIR DISKU AER [Concomitant]
  4. CLONAZEPAM [Concomitant]
     Active Substance: CLONAZEPAM
  5. CYMBALTA [Concomitant]
     Active Substance: DULOXETINE HYDROCHLORIDE
  6. LAMICTAL [Concomitant]
     Active Substance: LAMOTRIGINE
  7. LIPITOR [Concomitant]
     Active Substance: ATORVASTATIN CALCIUM
  8. LOSARTAN POTASSIUM [Concomitant]
     Active Substance: LOSARTAN POTASSIUM
  9. LYRICA [Concomitant]
     Active Substance: PREGABALIN
  10. PREGABALIN POW [Concomitant]
  11. TRAZODONE [Concomitant]
     Active Substance: TRAZODONE HYDROCHLORIDE
  12. TROCAR [Concomitant]
  13. WELLBUTRIN XL [Concomitant]
     Active Substance: BUPROPION HYDROCHLORIDE

REACTIONS (1)
  - Hernia repair [None]

NARRATIVE: CASE EVENT DATE: 20220315
